FAERS Safety Report 17411029 (Version 1)
Quarter: 2020Q1

REPORT INFORMATION
  Report Type: Spontaneous
  Country: US (occurrence: US)
  Receive Date: 20200212
  Receipt Date: 20200212
  Transmission Date: 20200409
  Serious: No
  Sender: FDA-Public Use
  Company Number: US-RIGEL PHARMACEUTICALS, INC.-2019FOS000639

PATIENT
  Age: 28 Year
  Sex: Male
  Weight: 130.61 kg

DRUGS (2)
  1. TAVALISSE [Suspect]
     Active Substance: FOSTAMATINIB
     Indication: AUTOIMMUNE DISORDER
     Dosage: 100 MG, BID
     Route: 048
     Dates: start: 20190401, end: 20190404
  2. GAMUNEX [Concomitant]
     Active Substance: HUMAN IMMUNOGLOBULIN G
     Indication: AUTOIMMUNE DISORDER
     Dosage: 60 GRAM, EVERY THREE WEEKS
     Route: 042

REACTIONS (3)
  - Off label use [Unknown]
  - Rash [Recovered/Resolved]
  - Nausea [Recovered/Resolved]

NARRATIVE: CASE EVENT DATE: 20190401
